FAERS Safety Report 18515397 (Version 2)
Quarter: 2020Q4

REPORT INFORMATION
  Report Type: Spontaneous
  Country: CA (occurrence: CA)
  Receive Date: 20201118
  Receipt Date: 20201127
  Transmission Date: 20210114
  Serious: Yes (Life-Threatening, Hospitalization, Other)
  Sender: FDA-Public Use
  Company Number: CA-AUROBINDO-AUR-APL-2020-056173

PATIENT
  Age: 22 Year
  Sex: Male

DRUGS (2)
  1. TERBINAFINE. [Suspect]
     Active Substance: TERBINAFINE
     Indication: TINEA INFECTION
  2. TERBINAFINE. [Suspect]
     Active Substance: TERBINAFINE
     Indication: SKIN INFECTION
     Dosage: 250 MILLIGRAM, ONCE A DAY
     Route: 065

REACTIONS (7)
  - Liver injury [Recovering/Resolving]
  - Fluid overload [Recovering/Resolving]
  - Drug-induced liver injury [Recovering/Resolving]
  - Acute kidney injury [Recovering/Resolving]
  - Hyperphosphataemia [Recovering/Resolving]
  - Rhabdomyolysis [Recovering/Resolving]
  - Hypocalcaemia [Recovering/Resolving]
